FAERS Safety Report 17793743 (Version 2)
Quarter: 2020Q2

REPORT INFORMATION
  Report Type: Spontaneous
  Country: PL (occurrence: PL)
  Receive Date: 20200515
  Receipt Date: 20200521
  Transmission Date: 20200714
  Serious: Yes (Other)
  Sender: FDA-Public Use
  Company Number: PL-AMGEN-POLSP2020076200

PATIENT
  Age: 75 Year
  Sex: Female

DRUGS (6)
  1. VENOFER [Concomitant]
     Active Substance: IRON SUCROSE
  2. ARANESP [Suspect]
     Active Substance: DARBEPOETIN ALFA
     Indication: ANAEMIA
     Dosage: 500 MICROGRAM
     Route: 058
  3. MELFALAN [MELPHALAN] [Concomitant]
     Active Substance: MELPHALAN
  4. PREDNIZON [Concomitant]
     Active Substance: PREDNISONE
  5. SORBIFER DURULES [FERROUS SULFATE] [Concomitant]
  6. TALIDOMIDA [Concomitant]
     Active Substance: THALIDOMIDE

REACTIONS (1)
  - Neutropenia [Unknown]

NARRATIVE: CASE EVENT DATE: 2019
